FAERS Safety Report 6349062-5 (Version None)
Quarter: 2009Q3

REPORT INFORMATION
  Report Type: 
  Country: None (occurrence: None)
  Receive Date: 20090911
  Receipt Date: 20090904
  Transmission Date: 20100115
  Serious: Yes (Hospitalization)
  Sender: FDA-Public Use
  Company Number: AU-AVENTIS-200920075GDDC

PATIENT
  Age: 49 Year
  Sex: Female

DRUGS (8)
  1. ARAVA [Suspect]
     Route: 048
     Dates: start: 20090722
  2. ACETAMINOPHEN [Concomitant]
     Dosage: DOSE: UNK
  3. PANADEINE                          /00116401/ [Concomitant]
     Dosage: DOSE: UNK
  4. OXYCONTIN [Concomitant]
     Dosage: DOSE: UNK
  5. ENDONE [Concomitant]
     Dosage: DOSE: UNK
  6. PREDNISONE [Concomitant]
     Dosage: DOSE: UNK
  7. VERAPAMIL [Concomitant]
     Dosage: DOSE: UNK
  8. ISCOVER [Concomitant]
     Dosage: DOSE: UNK

REACTIONS (2)
  - INTERVERTEBRAL DISC PROTRUSION [None]
  - NERVE COMPRESSION [None]
